FAERS Safety Report 14120247 (Version 1)
Quarter: 2017Q4

REPORT INFORMATION
  Report Type: Spontaneous
  Country: US (occurrence: US)
  Receive Date: 20171024
  Receipt Date: 20171024
  Transmission Date: 20180321
  Serious: No
  Sender: FDA-Public Use
  Company Number: US-MYLANLABS-2016M1050537

PATIENT
  Age: 46 Year
  Sex: Female
  Weight: 47.62 kg

DRUGS (2)
  1. DENAVIR [Suspect]
     Active Substance: PENCICLOVIR
     Indication: ORAL HERPES
     Dosage: UNK UNK, PRN
     Route: 061
     Dates: start: 201610
  2. DENAVIR [Suspect]
     Active Substance: PENCICLOVIR
     Dosage: UNK
     Route: 061
     Dates: start: 201610

REACTIONS (4)
  - Application site pain [Unknown]
  - Cellulitis [Unknown]
  - Cheilitis [Unknown]
  - Product physical consistency issue [Unknown]

NARRATIVE: CASE EVENT DATE: 201610
